FAERS Safety Report 17631027 (Version 1)
Quarter: 2020Q2

REPORT INFORMATION
  Report Type: Spontaneous
  Country: GB (occurrence: GB)
  Receive Date: 20200406
  Receipt Date: 20200406
  Transmission Date: 20200713
  Serious: Yes (Hospitalization)
  Sender: FDA-Public Use
  Company Number: GB-TEVA-2020-GB-1219102

PATIENT
  Age: 79 Year
  Sex: Male

DRUGS (19)
  1. OXYCODONE [Suspect]
     Active Substance: OXYCODONE
     Dosage: 20 MG AT NIGHT
     Route: 048
  2. EZETIMIBE. [Concomitant]
     Active Substance: EZETIMIBE
     Dosage: 10 MG MORNING
     Route: 048
  3. OXYCODONE [Suspect]
     Active Substance: OXYCODONE
     Dosage: 15 MG IN THE MORNING
     Route: 048
  4. LEVETIRACETAM. [Concomitant]
     Active Substance: LEVETIRACETAM
     Dosage: 1500 MG
     Route: 048
  5. GLYCEROL [Concomitant]
     Active Substance: GLYCERIN
     Dosage: 1 GRAM
     Route: 054
  6. CHEMYDUR XL [Concomitant]
     Active Substance: ISOSORBIDE MONONITRATE
     Dosage: 150 MG IN THE MORNING
     Route: 048
  7. FERROUS FUMARATE [Concomitant]
     Active Substance: FERROUS FUMARATE
     Dosage: 644 MG
     Route: 048
  8. APIXABAN [Concomitant]
     Active Substance: APIXABAN
     Dosage: 10 MG
     Route: 048
  9. METOCLOPRAMIDE. [Concomitant]
     Active Substance: METOCLOPRAMIDE
     Dosage: 10 MG THREE TIMES PER DAY
     Route: 048
  10. LANSOPRAZOLE. [Concomitant]
     Active Substance: LANSOPRAZOLE
     Dosage: 30 MG MORNING
     Route: 048
  11. SODIUM PICOSULFATE [Concomitant]
     Active Substance: SODIUM PICOSULFATE
     Dosage: 5MG/5ML ; AT NIGHT; UNIT DOSE: 10 ML
     Route: 048
  12. DULOXETINE. [Concomitant]
     Active Substance: DULOXETINE
     Dosage: 60 MG MORNING
     Route: 048
  13. HUMULIN L [Concomitant]
     Active Substance: INSULIN HUMAN
     Dosage: 100UNITS/ML MORNING; 24 IU
     Route: 058
  14. PARACETAMOL [Concomitant]
     Active Substance: ACETAMINOPHEN
     Dosage: 1 GRAM FOUR TIMES A DAY
     Route: 048
  15. LAXIDO [Concomitant]
     Active Substance: POLYETHYLENE GLYCOL 3350\POTASSIUM CHLORIDE\SODIUM BICARBONATE\SODIUM CHLORIDE
     Dosage: 2 DF
     Route: 048
  16. OXYNORM [Suspect]
     Active Substance: OXYCODONE HYDROCHLORIDE
     Dosage: 5MG/5ML  3 HOURLY
     Route: 048
  17. CASSIA [Concomitant]
     Dosage: 15 MG AT NIGHT
     Route: 048
  18. RANOLAZINE. [Concomitant]
     Active Substance: RANOLAZINE
     Dosage: 750 MG
     Route: 048
  19. GLYCERYL TRINITRATE [Concomitant]
     Active Substance: NITROGLYCERIN
     Dosage: 400 MCG ONE - TWO SPRAYS WHEN REQUIRED
     Route: 060

REACTIONS (2)
  - Fall [Recovered/Resolved]
  - Confusional state [Unknown]

NARRATIVE: CASE EVENT DATE: 20190824
